FAERS Safety Report 6237424-6 (Version None)
Quarter: 2009Q2

REPORT INFORMATION
  Report Type: 
  Country: None (occurrence: None)
  Receive Date: 20090619
  Receipt Date: 20090619
  Transmission Date: 20091009
  Serious: Yes (Other)
  Sender: FDA-Public Use
  Company Number: CH-BAXTER-2009BH009959

PATIENT
  Age: 42 Year
  Sex: Female

DRUGS (5)
  1. ENDOXAN BAXTER [Suspect]
     Indication: BREAST CANCER FEMALE
     Route: 041
     Dates: start: 20071024, end: 20080206
  2. FLUOROURACIL [Suspect]
     Indication: BREAST CANCER FEMALE
     Route: 041
     Dates: start: 20071024, end: 20080206
  3. FLUOROURACIL [Suspect]
     Route: 041
     Dates: start: 20071024, end: 20080206
  4. EPIRUBICIN HYDROCHLORIDE [Suspect]
     Indication: BREAST CANCER FEMALE
     Route: 041
     Dates: start: 20071024, end: 20080206
  5. RADIOTHERAPY [Suspect]
     Indication: BREAST CANCER FEMALE
     Route: 065
     Dates: start: 20080301

REACTIONS (1)
  - PERIODONTAL DISEASE [None]
